FAERS Safety Report 6920933-1 (Version None)
Quarter: 2010Q3

REPORT INFORMATION
  Report Type: 
  Country: None (occurrence: None)
  Receive Date: 20100812
  Receipt Date: 20100810
  Transmission Date: 20110219
  Serious: Yes (Hospitalization)
  Sender: FDA-Public Use
  Company Number: FR-SANOFI-AVENTIS-2010SA047202

PATIENT
  Age: 66 Year
  Sex: Female

DRUGS (23)
  1. AMAREL [Suspect]
     Route: 048
     Dates: start: 20100427, end: 20100520
  2. AMAREL [Suspect]
     Route: 048
     Dates: start: 20100522
  3. AMAREL [Suspect]
     Route: 048
     Dates: start: 20090701, end: 20100427
  4. CACIT VITAMINE D3 [Concomitant]
     Dates: end: 20100520
  5. CACIT VITAMINE D3 [Concomitant]
     Dates: start: 20100522
  6. PIOGLITAZONE [Concomitant]
     Route: 048
     Dates: end: 20100520
  7. PIOGLITAZONE [Concomitant]
     Dates: start: 20100522
  8. ALDACTONE [Concomitant]
     Route: 048
     Dates: end: 20100520
  9. ALDACTONE [Concomitant]
     Dates: start: 20100522
  10. LASIX [Concomitant]
     Route: 048
  11. DIFFU K [Concomitant]
     Route: 048
     Dates: end: 20100520
  12. DIFFU K [Concomitant]
     Dates: start: 20100521
  13. TRAVATAN [Concomitant]
     Dosage: DOSE:40 MICROGRAM(S)/MILLILITRE
     Route: 031
     Dates: end: 20100520
  14. TRAVATAN [Concomitant]
     Dates: start: 20100521
  15. LEVOTHYROXINE SODIUM [Concomitant]
     Route: 048
     Dates: end: 20100520
  16. LEVOTHYROXINE SODIUM [Concomitant]
     Dates: start: 20100522
  17. LANSOPRAZOLE [Concomitant]
     Route: 048
     Dates: end: 20100520
  18. LANSOPRAZOLE [Concomitant]
     Dates: start: 20100521
  19. FERROUS SULFATE [Concomitant]
     Route: 048
     Dates: end: 20100520
  20. FERROUS SULFATE [Concomitant]
     Dates: start: 20100521
  21. GAVISCON [Concomitant]
     Route: 048
     Dates: end: 20100520
  22. GAVISCON [Concomitant]
     Dates: start: 20100521
  23. OXYGEN [Concomitant]

REACTIONS (2)
  - ACUTE RESPIRATORY FAILURE [None]
  - HYPOGLYCAEMIA [None]
